FAERS Safety Report 19643685 (Version 9)
Quarter: 2022Q1

REPORT INFORMATION
  Report Type: Report from Study
  Country: US (occurrence: US)
  Receive Date: 20210731
  Receipt Date: 20220331
  Transmission Date: 20220423
  Serious: Yes (Hospitalization)
  Sender: FDA-Public Use
  Company Number: NVSC2021US167907

PATIENT
  Age: 30 Year
  Sex: Female

DRUGS (2)
  1. ADAKVEO [Suspect]
     Active Substance: CRIZANLIZUMAB-TMCA
     Indication: Sickle cell disease
     Dosage: UNK, QMO
     Route: 042
     Dates: start: 20200226, end: 20200226
  2. ADAKVEO [Suspect]
     Active Substance: CRIZANLIZUMAB-TMCA
     Dosage: UNK, QMO
     Route: 042
     Dates: start: 20200425, end: 20200425

REACTIONS (9)
  - Pneumonia [Recovering/Resolving]
  - Malaise [Unknown]
  - Fatigue [Recovered/Resolved]
  - Pain [Recovered/Resolved]
  - Weight decreased [Unknown]
  - Fatigue [Unknown]
  - Feeling abnormal [Unknown]
  - Muscle disorder [Unknown]
  - Illness [Unknown]

NARRATIVE: CASE EVENT DATE: 20210719
